FAERS Safety Report 10920672 (Version 1)
Quarter: 2015Q1

REPORT INFORMATION
  Report Type: Spontaneous
  Country: US (occurrence: None)
  Receive Date: 20150313
  Receipt Date: 20150313
  Transmission Date: 20150721
  Serious: Yes (Other)
  Sender: FDA-Public Use
  Company Number: None

PATIENT
  Age: 72 Year
  Sex: Female
  Weight: 74.39 kg

DRUGS (10)
  1. NITROFURATIN [Concomitant]
  2. BABY ASPIRIN [Concomitant]
     Active Substance: ASPIRIN
  3. NAMENDA XR [Suspect]
     Active Substance: MEMANTINE HYDROCHLORIDE
     Indication: DEMENTIA ALZHEIMER^S TYPE
     Route: 048
     Dates: start: 20150205, end: 20150309
  4. ATORVASTATIN [Concomitant]
     Active Substance: ATORVASTATIN
  5. EXELON [Concomitant]
     Active Substance: RIVASTIGMINE TARTRATE
  6. VITAMIN D [Concomitant]
     Active Substance: CHOLECALCIFEROL
  7. VITAMIN B12 [Concomitant]
     Active Substance: CYANOCOBALAMIN
  8. LANTUS SOLOSTAR [Concomitant]
     Active Substance: INSULIN GLARGINE
  9. GLIMPERIDE [Concomitant]
  10. NAMENDA [Concomitant]
     Active Substance: MEMANTINE HYDROCHLORIDE

REACTIONS (8)
  - Speech disorder [None]
  - Activities of daily living impaired [None]
  - Insomnia [None]
  - Headache [None]
  - Cognitive disorder [None]
  - Incontinence [None]
  - Disturbance in attention [None]
  - Middle insomnia [None]

NARRATIVE: CASE EVENT DATE: 20150308
